FAERS Safety Report 7091298-2 (Version None)
Quarter: 2010Q4

REPORT INFORMATION
  Report Type: 
  Country: None (occurrence: None)
  Receive Date: 20101109
  Receipt Date: 20101029
  Transmission Date: 20110411
  Serious: Yes (Other)
  Sender: FDA-Public Use
  Company Number: JP-AMGEN-JPNCT2010003614

PATIENT

DRUGS (11)
  1. PANITUMUMAB [Suspect]
     Indication: COLORECTAL CANCER
     Dosage: 6 MG/KG, Q2WK
     Route: 041
     Dates: start: 20100830, end: 20100927
  2. SANDOSTATIN [Concomitant]
     Route: 042
  3. ELNEOPA [Concomitant]
     Route: 042
  4. PRIMPERAN [Concomitant]
     Route: 042
  5. LASIX [Concomitant]
     Route: 042
  6. NEW LECICARBON SUPP [Concomitant]
     Route: 054
  7. BUSCOPAN [Concomitant]
     Route: 042
  8. FLURBIPROFEN [Concomitant]
     Route: 042
  9. SERENACE [Concomitant]
     Route: 042
  10. DEPAS [Concomitant]
     Route: 048
  11. ATARAX [Concomitant]
     Route: 042

REACTIONS (2)
  - BLOOD POTASSIUM INCREASED [None]
  - DERMATITIS CONTACT [None]
